FAERS Safety Report 20840929 (Version 1)
Quarter: 2022Q2

REPORT INFORMATION
  Report Type: Spontaneous
  Country: US (occurrence: US)
  Receive Date: 20220517
  Receipt Date: 20220517
  Transmission Date: 20220720
  Serious: Yes (Other)
  Sender: FDA-Public Use
  Company Number: US-PFIZER INC-202200699262

PATIENT
  Age: 65 Year
  Sex: Male

DRUGS (7)
  1. PAXLOVID [Suspect]
     Active Substance: NIRMATRELVIR\RITONAVIR
     Indication: COVID-19 treatment
     Dosage: UNK, 2X/DAY
     Dates: start: 20220326, end: 20220330
  2. METFORMIN HYDROCHLORIDE [Concomitant]
     Active Substance: METFORMIN HYDROCHLORIDE
     Dates: start: 200601
  3. VITAMIN D NOS [Concomitant]
     Active Substance: VITAMIN D NOS
     Dates: start: 201801
  4. TADALAFIL [Concomitant]
     Active Substance: TADALAFIL
     Dates: start: 202005
  5. ROSUVASTATIN [Concomitant]
     Active Substance: ROSUVASTATIN
     Dates: start: 201705
  6. ASPIRIN [Concomitant]
     Active Substance: ASPIRIN
     Dates: start: 201510
  7. NAPROXEN [Concomitant]
     Active Substance: NAPROXEN
     Dates: start: 20220327, end: 202204

REACTIONS (8)
  - Mitral valve incompetence [Recovered/Resolved]
  - Chordae tendinae rupture [Recovered/Resolved]
  - COVID-19 [Recovered/Resolved]
  - Disease recurrence [Recovered/Resolved]
  - Dyspnoea [Recovered/Resolved]
  - Chest discomfort [Not Recovered/Not Resolved]
  - Cardiac disorder [Recovered/Resolved]
  - Enzyme abnormality [Unknown]

NARRATIVE: CASE EVENT DATE: 20220328
